FAERS Safety Report 4932202-X (Version None)
Quarter: 2006Q1

REPORT INFORMATION
  Report Type: 
  Country: None (occurrence: None)
  Receive Date: 20060303
  Receipt Date: 20050627
  Transmission Date: 20060701
  Serious: Yes (Other)
  Sender: FDA-Public Use
  Company Number: PHEH2005US07293

PATIENT
  Age: 80 Year
  Sex: Male

DRUGS (3)
  1. ZOMETA [Suspect]
     Indication: MULTIPLE MYELOMA
     Dosage: 4 MG EVERY 4 WEEKS
     Dates: start: 20040917, end: 20050504
  2. VELCADE [Concomitant]
     Indication: MULTIPLE MYELOMA
     Dosage: 2.6 MG DAY 1, 4, 8, AND 11 FOR 21 DAYS
     Dates: start: 20050711, end: 20050831
  3. THALIDOMIDE [Concomitant]
     Indication: MULTIPLE MYELOMA
     Dosage: 100 MG, QD
     Dates: start: 20050305, end: 20050727

REACTIONS (2)
  - AORTIC VALVE STENOSIS [None]
  - OSTEONECROSIS [None]
